FAERS Safety Report 7754569-X (Version None)
Quarter: 2011Q3

REPORT INFORMATION
  Report Type: 
  Country: None (occurrence: None)
  Receive Date: 20110915
  Receipt Date: 20110914
  Transmission Date: 20111222
  Serious: Yes (Other)
  Sender: FDA-Public Use
  Company Number: US-BAYER-2011-086023

PATIENT
  Age: 51 Year
  Sex: Female

DRUGS (1)
  1. EOVIST [Suspect]
     Indication: NUCLEAR MAGNETIC RESONANCE IMAGING
     Dosage: 10 ML, ONCE
     Route: 042
     Dates: start: 20110907, end: 20110907

REACTIONS (4)
  - URTICARIA [None]
  - LACRIMATION INCREASED [None]
  - HYPERSENSITIVITY [None]
  - DYSPNOEA [None]
